FAERS Safety Report 4867517-7 (Version None)
Quarter: 2005Q4

REPORT INFORMATION
  Report Type: 
  Country: None (occurrence: None)
  Receive Date: 20051222
  Receipt Date: 20051207
  Transmission Date: 20060501
  Serious: Yes (Death, Hospitalization)
  Sender: FDA-Public Use
  Company Number: US200512001345

PATIENT
  Age: 74 Year
  Sex: Female

DRUGS (4)
  1. ZYPREXA [Suspect]
     Dosage: 5 MG, UNK
     Route: 065
     Dates: start: 20030101
  2. SYMBYAX [Suspect]
     Dosage: 6/25, UNK
     Route: 065
  3. ZYPREXA [Suspect]
     Dosage: 2.5 MG, UNK
     Route: 065
  4. ABILIFY [Concomitant]

REACTIONS (2)
  - COMA [None]
  - PNEUMONIA ASPIRATION [None]
